FAERS Safety Report 8904764 (Version 2)
Quarter: 2012Q4

REPORT INFORMATION
  Report Type: 
  Country: US (occurrence: US)
  Receive Date: 20121112
  Receipt Date: 20121220
  Transmission Date: 20130627
  Serious: Yes (Hospitalization)
  Sender: FDA-Public Use
  Company Number: US-US-EMD SERONO, INC.-7172873

PATIENT
  Age: 57 Year
  Sex: Female
  Weight: 83 kg

DRUGS (8)
  1. REBIF [Suspect]
     Indication: MULTIPLE SCLEROSIS
     Route: 058
     Dates: start: 20120423
  2. FLEXERIL [Concomitant]
     Indication: MUSCLE SPASMS
  3. CARDIZEM [Concomitant]
     Indication: BLOOD PRESSURE
  4. ESTRACE [Concomitant]
     Indication: PRODUCT USED FOR UNKNOWN INDICATION
  5. DILAUDID [Concomitant]
     Indication: PRODUCT USED FOR UNKNOWN INDICATION
  6. SYNTHROID [Concomitant]
     Indication: PRODUCT USED FOR UNKNOWN INDICATION
  7. DILANTIN [Concomitant]
     Indication: PRODUCT USED FOR UNKNOWN INDICATION
  8. CELEXA [Concomitant]
     Indication: PRODUCT USED FOR UNKNOWN INDICATION

REACTIONS (2)
  - Gastroenteritis viral [Recovered/Resolved]
  - Multiple sclerosis relapse [Recovered/Resolved]
